FAERS Safety Report 18494175 (Version 3)
Quarter: 2022Q1

REPORT INFORMATION
  Report Type: Report from Study
  Country: DE (occurrence: DE)
  Receive Date: 20201111
  Receipt Date: 20220124
  Transmission Date: 20220423
  Serious: Yes (Hospitalization, Other)
  Sender: FDA-Public Use
  Company Number: DE-TAKEDA-2020TUS047068

PATIENT
  Age: 40 Year
  Sex: Female

DRUGS (9)
  1. TEDUGLUTIDE [Suspect]
     Active Substance: TEDUGLUTIDE
     Indication: Short-bowel syndrome
     Dosage: 5 MILLIGRAM
     Route: 065
     Dates: start: 20150410
  2. TEDUGLUTIDE [Suspect]
     Active Substance: TEDUGLUTIDE
     Indication: Short-bowel syndrome
     Dosage: 5 MILLIGRAM
     Route: 065
     Dates: start: 20150410
  3. TEDUGLUTIDE [Suspect]
     Active Substance: TEDUGLUTIDE
     Indication: Short-bowel syndrome
     Dosage: 5 MILLIGRAM
     Route: 065
     Dates: start: 20150410
  4. TEDUGLUTIDE [Suspect]
     Active Substance: TEDUGLUTIDE
     Indication: Short-bowel syndrome
     Dosage: 5 MILLIGRAM
     Route: 065
     Dates: start: 20150410
  5. RIFAXIMIN [Concomitant]
     Active Substance: RIFAXIMIN
     Indication: Diarrhoea
     Dosage: 400 MILLIGRAM, BID
     Route: 048
     Dates: start: 201902
  6. OPIUM TINCTURE [Concomitant]
     Active Substance: MORPHINE
     Indication: Gastroenteritis radiation
     Dosage: 100 MILLIGRAM
     Route: 048
     Dates: start: 201511, end: 201701
  7. OPIUM TINCTURE [Concomitant]
     Active Substance: MORPHINE
     Dosage: 200 MILLIGRAM
     Route: 048
     Dates: start: 201701
  8. POSTERISAN AKUT [Concomitant]
     Indication: Haemorrhoids
     Dosage: 50 MILLIGRAM
     Route: 062
     Dates: start: 201902
  9. IMDEVIMAB [Concomitant]
     Active Substance: IMDEVIMAB
     Indication: COVID-19
     Dosage: 999, UNK
     Route: 065
     Dates: start: 20211210, end: 202112

REACTIONS (2)
  - Device defective [Recovered/Resolved]
  - Nasopharyngitis [Recovered/Resolved]

NARRATIVE: CASE EVENT DATE: 20200301
